FAERS Safety Report 16398893 (Version 2)
Quarter: 2019Q2

REPORT INFORMATION
  Report Type: Spontaneous
  Country: US (occurrence: US)
  Receive Date: 20190606
  Receipt Date: 20190613
  Transmission Date: 20190711
  Serious: No
  Sender: FDA-Public Use
  Company Number: US-PFIZER INC-2019235132

PATIENT
  Age: 67 Year
  Sex: Female

DRUGS (20)
  1. ASPIRIN. [Concomitant]
     Active Substance: ASPIRIN
     Indication: CARDIAC DISORDER
     Dosage: 81 MG, 1X/DAY [ONE TABLET BY MOUTH DAY]
     Route: 048
     Dates: start: 2017
  2. ELIQUIS [Concomitant]
     Active Substance: APIXABAN
     Indication: CEREBROVASCULAR ACCIDENT
     Dosage: 5 MG, 2X/DAY
     Route: 048
     Dates: start: 2018
  3. CRANBERRY. [Concomitant]
     Active Substance: CRANBERRY
     Indication: URINARY TRACT INFECTION
     Dosage: 25000 MG, 1X/DAY
     Route: 048
     Dates: start: 2017
  4. HYDROXYZINE [Concomitant]
     Active Substance: HYDROXYZINE HYDROCHLORIDE
     Indication: PRURITUS
     Dosage: 10 MG, AS NEEDED
     Route: 048
     Dates: start: 2017
  5. ZETIA [Concomitant]
     Active Substance: EZETIMIBE
     Indication: BLOOD CHOLESTEROL
     Dosage: 10 MG, DAILY [10MG TABLET ONE PER DAY]
     Dates: start: 2018
  6. AMLODIPINE BESILATE [Concomitant]
     Active Substance: AMLODIPINE BESYLATE
     Indication: BLOOD PRESSURE ABNORMAL
     Dosage: 7.5 MG, DAILY [2.5MG TABLET TWO IN MORNING ONE IN EVENING]
     Route: 048
  7. CLONIDINE. [Concomitant]
     Active Substance: CLONIDINE
     Dosage: 0.1 MG, 2X/DAY [0.1MG ONE TABLET BY MOUTH TWO TIMES A DAY ONE IN AFTERNOON AND MORNING]
     Route: 048
     Dates: start: 2018
  8. DIAZEPAM. [Concomitant]
     Active Substance: DIAZEPAM
     Indication: ANXIETY
     Dosage: 5 MG, AS NEEDED [ONE 5MG TABLET BY MOUTH EVERY SIX HOURS AS NEEDED]
     Route: 048
     Dates: start: 2017
  9. DIAZEPAM. [Concomitant]
     Active Substance: DIAZEPAM
     Dosage: 2 MG, AS NEEDED [ONE TABLET BY MOUTH EVERY SIX HOURS AS NEEDED]
     Route: 048
     Dates: start: 2017
  10. OMEGA 3 ETHYL ESTERS [Concomitant]
     Indication: BLOOD CHOLESTEROL
     Dosage: 1 G, 1X/DAY [1 GRAM CAPSULE ONE BY MOUTH A DAY ]
     Route: 048
     Dates: start: 2018
  11. ONDANSETRON [Concomitant]
     Active Substance: ONDANSETRON
     Indication: NAUSEA
     Dosage: 8 MG, AS NEEDED [TWO 4MG TABLETS BY MOUTH TWICE A DAY AS NEEDED]
     Route: 048
     Dates: start: 2009
  12. CLONIDINE. [Concomitant]
     Active Substance: CLONIDINE
     Indication: BLOOD PRESSURE ABNORMAL
     Dosage: 0.2 MG, 1X/DAY [ONE BY MOUTH IN THE MORNING]
     Route: 048
     Dates: start: 2018
  13. TRAMADOL. [Concomitant]
     Active Substance: TRAMADOL
     Indication: ARTHRALGIA
     Dosage: 100 MG, 3X/DAY [TWO 50MG TABLETS BY MOUTH EVERY EIGHT HOURS]
     Route: 048
     Dates: start: 2017
  14. ZYRTEC [Concomitant]
     Active Substance: CETIRIZINE HYDROCHLORIDE
     Indication: HYPERSENSITIVITY
     Dosage: 10 MG, AS NEEDED
     Route: 048
     Dates: start: 2014
  15. TIKOSYN [Suspect]
     Active Substance: DOFETILIDE
     Indication: CARDIAC PACEMAKER INSERTION
     Dosage: 250 UG, TWICE A DAY
     Route: 048
     Dates: start: 2018
  16. TYLENOL [Concomitant]
     Active Substance: ACETAMINOPHEN
     Indication: ARTHRALGIA
     Dosage: 1300 MG, 3X/DAY [TWO 650MG TABLETS BY MOUTH EVERY 8 HOURS]
     Route: 048
     Dates: start: 2016
  17. ATENOLOL. [Concomitant]
     Active Substance: ATENOLOL
     Indication: CARDIAC DISORDER
     Dosage: 150 MG, DAILY [TWO 50MG TABLETS EVERY MORNING ONE IN EVENING]
     Dates: start: 2004
  18. MECLIZINE [Concomitant]
     Active Substance: MECLIZINE HYDROCHLORIDE
     Indication: NAUSEA
     Dosage: 25 MG, AS NEEDED [25MG TABLET BY MOUTH THREE TIMES A DAY AS NEEDED]
     Route: 048
     Dates: start: 2017
  19. VITAMIN D3 [Concomitant]
     Active Substance: CHOLECALCIFEROL
     Indication: VITAMIN D DEFICIENCY
     Dosage: 2000 IU, 1X/DAY
     Route: 048
     Dates: start: 2014
  20. VITAMIN D3 [Concomitant]
     Active Substance: CHOLECALCIFEROL
     Dosage: 1000 IU, 1X/DAY
     Route: 048
     Dates: start: 2014

REACTIONS (5)
  - Off label use [Not Recovered/Not Resolved]
  - Product use in unapproved indication [Not Recovered/Not Resolved]
  - Weight decreased [Unknown]
  - Vitamin D decreased [Unknown]
  - Expired product administered [Unknown]

NARRATIVE: CASE EVENT DATE: 2018
